FAERS Safety Report 23310006 (Version 2)
Quarter: 2024Q1

REPORT INFORMATION
  Report Type: Spontaneous
  Country: GR (occurrence: GR)
  Receive Date: 20231218
  Receipt Date: 20240104
  Transmission Date: 20240410
  Serious: Yes (Hospitalization)
  Sender: FDA-Public Use
  Company Number: GR-BAXTER-2023BAX028520

PATIENT
  Age: 55 Year
  Sex: Male
  Weight: 82 kg

DRUGS (18)
  1. CYCLOPHOSPHAMIDE [Suspect]
     Active Substance: CYCLOPHOSPHAMIDE
     Indication: Diffuse large B-cell lymphoma
     Dosage: 1522.5 MG, Q3W
     Route: 042
     Dates: start: 20230606, end: 20230719
  2. DOXORUBICIN [Suspect]
     Active Substance: DOXORUBICIN
     Indication: Diffuse large B-cell lymphoma
     Dosage: 101.5 MG, Q3W
     Route: 042
     Dates: start: 20230606, end: 20230719
  3. EPCORITAMAB [Suspect]
     Active Substance: EPCORITAMAB
     Indication: Diffuse large B-cell lymphoma
     Dosage: 48 MG, QW
     Route: 058
     Dates: start: 20230606, end: 20230719
  4. PREDNISONE [Suspect]
     Active Substance: PREDNISONE
     Indication: Diffuse large B-cell lymphoma
     Dosage: 100 MG, QD, C1-6, DAY 1-5, EVERY 1 DAYS, ONGOING
     Route: 048
     Dates: start: 20230606, end: 20230723
  5. RITUXIMAB [Suspect]
     Active Substance: RITUXIMAB
     Indication: Diffuse large B-cell lymphoma
     Dosage: 761.65 MG, Q3W, ONGOING
     Route: 042
     Dates: start: 20230606, end: 20230719
  6. VINCRISTINE [Suspect]
     Active Substance: VINCRISTINE
     Indication: Diffuse large B-cell lymphoma
     Dosage: 1 MG, Q3W, ONGOING
     Route: 042
     Dates: start: 20230606, end: 20230719
  7. ACETAMINOPHEN [Concomitant]
     Active Substance: ACETAMINOPHEN
     Indication: Premedication
     Dosage: 1000 MG, AS NECESSARY
     Route: 065
     Dates: start: 20230606
  8. DEXAMETHASONE [Concomitant]
     Active Substance: DEXAMETHASONE
     Indication: Prophylaxis
     Dosage: 15 MG, TOTAL
     Route: 065
     Dates: start: 20230712, end: 20230712
  9. DEXAMETHASONE [Concomitant]
     Active Substance: DEXAMETHASONE
     Dosage: 16 MG, Q24H
     Route: 065
     Dates: start: 20120713, end: 20120713
  10. DIMETHINDENE [Concomitant]
     Active Substance: DIMETHINDENE
     Indication: Premedication
     Dosage: 4 MG, AS NECESSARY
     Route: 065
     Dates: start: 20230606
  11. FILGRASTIM [Concomitant]
     Active Substance: FILGRASTIM
     Indication: Neutropenia
     Dosage: 48 IU, QD
     Route: 065
     Dates: start: 20230726, end: 20230802
  12. INSULIN NOS [Concomitant]
     Active Substance: INSULIN NOS
     Indication: Hyperglycaemia
     Dosage: DOSE(S): DOSE; UNITS ACCORDING TO BLOOD GLUCOSE LEVELS, AS NECESSARYTO BLOOD GLUCOSE LEVELS, AS NECE
     Route: 065
     Dates: start: 20230607
  13. PEGFILGRASTIM [Concomitant]
     Active Substance: PEGFILGRASTIM
     Indication: Prophylaxis
     Dosage: 6 MG,  AS NECESSARY
     Route: 065
     Dates: start: 20230606
  14. SULFAMETHOXAZOLE\TRIMETHOPRIM [Concomitant]
     Active Substance: SULFAMETHOXAZOLE\TRIMETHOPRIM
     Indication: Antifungal prophylaxis
     Dosage: UNK UNK, QOD, 800/70 MG
     Route: 065
     Dates: start: 20230606
  15. SOLU-MEDROL [Concomitant]
     Active Substance: METHYLPREDNISOLONE SODIUM SUCCINATE
     Indication: Premedication
     Dosage: 125 MG, AS NECESSARY
     Route: 065
     Dates: start: 20230606
  16. SOLU-MEDROL [Concomitant]
     Active Substance: METHYLPREDNISOLONE SODIUM SUCCINATE
     Dosage: 125 MG, AS NECESSARY ROUTE OF ADMIN (FREE TEXT): UNKNOWN ROUTE
     Route: 065
     Dates: start: 20230606
  17. VALTREX [Concomitant]
     Active Substance: VALACYCLOVIR HYDROCHLORIDE
     Indication: Antiviral prophylaxis
     Dosage: 500 MG, QD
     Route: 065
     Dates: start: 20230606
  18. ALLOPURINOL [Concomitant]
     Active Substance: ALLOPURINOL
     Indication: Prophylaxis
     Dosage: 300 MG, QD
     Route: 065
     Dates: start: 20230606

REACTIONS (2)
  - Pneumonia cytomegaloviral [Not Recovered/Not Resolved]
  - Pyrexia [Not Recovered/Not Resolved]

NARRATIVE: CASE EVENT DATE: 20230729
